FAERS Safety Report 9643712 (Version 1)
Quarter: 2013Q4

REPORT INFORMATION
  Report Type: Spontaneous
  Country: DE (occurrence: DE)
  Receive Date: 20131024
  Receipt Date: 20131024
  Transmission Date: 20140711
  Serious: Yes (Other)
  Sender: FDA-Public Use
  Company Number: DE-PFIZER INC-2013301397

PATIENT
  Age: 47 Year
  Sex: Male

DRUGS (1)
  1. SULFASALAZINE [Suspect]
     Dosage: UNK

REACTIONS (1)
  - Suicidal ideation [Unknown]
